FAERS Safety Report 6661109-5 (Version None)
Quarter: 2010Q1

REPORT INFORMATION
  Report Type: 
  Country: None (occurrence: None)
  Receive Date: 20100326
  Receipt Date: 20080404
  Transmission Date: 20100710
  Serious: Yes (Hospitalization)
  Sender: FDA-Public Use
  Company Number: THYR-1000004

PATIENT
  Age: 46 Year
  Sex: Female

DRUGS (1)
  1. THYROGEN [Suspect]
     Indication: DIAGNOSTIC PROCEDURE
     Dosage: 2 VIALS IN 1 INJECTION

REACTIONS (4)
  - BLOOD THYROID STIMULATING HORMONE INCREASED [None]
  - INCORRECT DOSE ADMINISTERED [None]
  - MEDICATION ERROR [None]
  - NAUSEA [None]
